FAERS Safety Report 5479035-6 (Version None)
Quarter: 2007Q4

REPORT INFORMATION
  Report Type: 
  Country: None (occurrence: None)
  Receive Date: 20071006
  Receipt Date: 20070924
  Transmission Date: 20080405
  Serious: Yes (Other)
  Sender: FDA-Public Use
  Company Number: US-PFIZER INC-2007081006

PATIENT
  Sex: Female
  Weight: 54.545 kg

DRUGS (3)
  1. CHANTIX [Suspect]
     Indication: SMOKING CESSATION THERAPY
  2. PHOSPHOLINE IODIDE [Interacting]
     Indication: MACULAR DEGENERATION
  3. ALL OTHER THERAPEUTIC PRODUCTS [Interacting]
     Indication: INSOMNIA
     Dates: start: 20070910, end: 20070915

REACTIONS (11)
  - CONTUSION [None]
  - DRUG INTERACTION [None]
  - INTENTIONAL DRUG MISUSE [None]
  - LYMPHADENOPATHY [None]
  - MALAISE [None]
  - NAUSEA [None]
  - SKIN DISCOLOURATION [None]
  - SOMNOLENCE [None]
  - TENDERNESS [None]
  - THROMBOSIS [None]
  - VERTIGO [None]
